FAERS Safety Report 10424686 (Version 2)
Quarter: 2017Q2

REPORT INFORMATION
  Report Type: Spontaneous
  Country: GB (occurrence: GB)
  Receive Date: 20140902
  Receipt Date: 20170504
  Transmission Date: 20170829
  Serious: Yes (Congenital Anomaly)
  Sender: FDA-Public Use
  Company Number: PHHY2014GB107090

PATIENT

DRUGS (1)
  1. CITALOPRAM [Suspect]
     Active Substance: CITALOPRAM HYDROBROMIDE
     Dosage: MATERNAL DOSE: 20 MG, QD
     Route: 064

REACTIONS (1)
  - Double outlet right ventricle [Unknown]

NARRATIVE: CASE EVENT DATE: 20140627
